FAERS Safety Report 24583457 (Version 2)
Quarter: 2025Q1

REPORT INFORMATION
  Report Type: Report from Study
  Country: DE (occurrence: DE)
  Receive Date: 20241106
  Receipt Date: 20250124
  Transmission Date: 20250409
  Serious: No
  Sender: ROCHE
  Company Number: DE-ROCHE-3503665

PATIENT
  Age: 46 Year
  Sex: Female

DRUGS (4)
  1. OCREVUS [Suspect]
     Active Substance: OCRELIZUMAB
     Indication: Primary progressive multiple sclerosis
     Dosage: SUBSEQUENT THERAPY OF OCREVUS: 600 MG EVERY 210 DAYS.
     Route: 042
     Dates: start: 20231229
  2. CANDESARTAN CILEXETIL [Concomitant]
     Active Substance: CANDESARTAN CILEXETIL
  3. LEVOTHYROXINE SODIUM [Concomitant]
     Active Substance: LEVOTHYROXINE SODIUM
  4. CHOLECALCIFEROL [Concomitant]
     Active Substance: CHOLECALCIFEROL

REACTIONS (7)
  - Fatigue [Not Recovered/Not Resolved]
  - COVID-19 [Recovered/Resolved]
  - Spinal pain [Not Recovered/Not Resolved]
  - Restlessness [Not Recovered/Not Resolved]
  - Vision blurred [Not Recovered/Not Resolved]
  - Disturbance in attention [Not Recovered/Not Resolved]
  - Throat irritation [Recovered/Resolved]

NARRATIVE: CASE EVENT DATE: 20231230
